FAERS Safety Report 13606585 (Version 1)
Quarter: 2017Q2

REPORT INFORMATION
  Report Type: Spontaneous
  Country: US (occurrence: US)
  Receive Date: 20170602
  Receipt Date: 20170602
  Transmission Date: 20170830
  Serious: No
  Sender: FDA-Public Use
  Company Number: US-NOVEN PHARMACEUTICALS, INC.-US2016002796

PATIENT

DRUGS (5)
  1. CLONAZEPAM. [Concomitant]
     Active Substance: CLONAZEPAM
  2. DAYTRANA [Suspect]
     Active Substance: METHYLPHENIDATE
     Indication: DEMENTIA WITH LEWY BODIES
     Dosage: 30 MG, UNKNOWN
     Route: 062
  3. ARICEPT [Concomitant]
     Active Substance: DONEPEZIL HYDROCHLORIDE
  4. THERAQUIL [Concomitant]
  5. NUVIGIL [Concomitant]
     Active Substance: ARMODAFINIL

REACTIONS (2)
  - No adverse event [Unknown]
  - Off label use [Unknown]
